FAERS Safety Report 5099669-0 (Version None)
Quarter: 2006Q3

REPORT INFORMATION
  Report Type: 
  Country: None (occurrence: None)
  Receive Date: 20060908
  Receipt Date: 20060301
  Transmission Date: 20061208
  Serious: Yes (Life-Threatening, Hospitalization)
  Sender: FDA-Public Use
  Company Number: PHHO2006DE03644

PATIENT
  Age: 34 Year
  Sex: Male

DRUGS (3)
  1. SANDIMMUNE [Concomitant]
     Indication: RENAL TRANSPLANT
     Route: 048
     Dates: end: 20060225
  2. MYFORTIC [Suspect]
     Indication: RENAL TRANSPLANT
     Route: 048
     Dates: end: 20060225
  3. CERTICAN [Suspect]
     Indication: RENAL TRANSPLANT
     Dosage: NO TREATMENT
     Route: 048

REACTIONS (16)
  - ABDOMINAL HAEMATOMA [None]
  - COAGULOPATHY [None]
  - COLECTOMY [None]
  - HAEMATOMA EVACUATION [None]
  - HAEMATOMA INFECTION [None]
  - ILEOSTOMY [None]
  - INTRA-ABDOMINAL HAEMORRHAGE [None]
  - KIDNEY TRANSPLANT REJECTION [None]
  - LARGE INTESTINE PERFORATION [None]
  - MEGACOLON [None]
  - PERITONITIS [None]
  - RENAL FAILURE ACUTE [None]
  - RENAL HAEMATOMA [None]
  - SEPTIC SHOCK [None]
  - SUBILEUS [None]
  - SURGERY [None]
